FAERS Safety Report 6223565-6 (Version None)
Quarter: 2009Q2

REPORT INFORMATION
  Report Type: 
  Country: None (occurrence: None)
  Receive Date: 20090610
  Receipt Date: 20090526
  Transmission Date: 20091009
  Serious: Yes (Life-Threatening, Hospitalization)
  Sender: FDA-Public Use
  Company Number: 2009AL003681

PATIENT
  Age: 69 Year
  Sex: Female

DRUGS (7)
  1. RAMIPRIL [Suspect]
     Indication: DRUG USE FOR UNKNOWN INDICATION
     Dates: end: 20090316
  2. HALOPERIDOL LACTATE [Suspect]
     Indication: RESTLESSNESS
     Dosage: 1 M G; BID; PO
     Route: 048
     Dates: end: 20090313
  3. ZOLPIDEM TARTRATE [Concomitant]
  4. DIPYRONE INJ [Concomitant]
  5. CLOPIDOGREL [Concomitant]
  6. PANTOZOL [Concomitant]
  7. THEOPHYLLINE [Concomitant]

REACTIONS (11)
  - AGITATION [None]
  - DRUG INTERACTION [None]
  - DYSARTHRIA [None]
  - DYSPNOEA [None]
  - FEELING HOT [None]
  - HYPERKINESIA [None]
  - HYPONATRAEMIA [None]
  - NAUSEA [None]
  - PALLOR [None]
  - RHABDOMYOLYSIS [None]
  - TACHYCARDIA [None]
